FAERS Safety Report 9308899 (Version 3)
Quarter: 2013Q3

REPORT INFORMATION
  Report Type: Spontaneous
  Country: ES (occurrence: ES)
  Receive Date: 20130524
  Receipt Date: 20130725
  Transmission Date: 20140515
  Serious: Yes (Hospitalization, Other)
  Sender: FDA-Public Use
  Company Number: ES-AMGEN-ESPSP2013035705

PATIENT
  Sex: Female

DRUGS (3)
  1. PROLIA [Suspect]
     Indication: OSTEOPOROSIS POSTMENOPAUSAL
     Dosage: 60 MG, Q6MO
     Route: 058
     Dates: start: 20120123, end: 201301
  2. HIDROFEROL [Concomitant]
     Indication: OSTEOPOROSIS
     Dosage: 0.266 MG, QMO
     Route: 048
  3. OMEPRAZOL                          /00661201/ [Concomitant]

REACTIONS (6)
  - Pancreatitis [Recovering/Resolving]
  - Pancreatic abscess [Unknown]
  - Pancreatic necrosis [Unknown]
  - Feeling abnormal [Unknown]
  - Gastrointestinal hypomotility [Unknown]
  - Pancreatitis relapsing [Unknown]
